FAERS Safety Report 15279982 (Version 1)
Quarter: 2018Q4

REPORT INFORMATION
  Report Type: Spontaneous
  Country: US (occurrence: US)
  Receive Date: 20180815
  Receipt Date: 20180815
  Transmission Date: 20190204
  Serious: No
  Sender: FDA-Public Use
  Company Number: US-TARO-2017TAR00651

PATIENT
  Sex: Male

DRUGS (2)
  1. CLOBETASOL PROPIONATE CREAM USP 0.05% [Suspect]
     Active Substance: CLOBETASOL PROPIONATE
     Indication: PSORIASIS
     Dosage: UNK
     Dates: start: 2017
  2. BETAMETHASONE (GLENMARK) [Suspect]
     Active Substance: BETAMETHASONE
     Indication: PSORIASIS

REACTIONS (4)
  - Haemorrhage [Not Recovered/Not Resolved]
  - Psoriasis [Recovering/Resolving]
  - Pruritus [Not Recovered/Not Resolved]
  - Incorrect product administration duration [Not Recovered/Not Resolved]

NARRATIVE: CASE EVENT DATE: 2017
